FAERS Safety Report 14000176 (Version 1)
Quarter: 2017Q3

REPORT INFORMATION
  Report Type: Spontaneous
  Country: US (occurrence: US)
  Receive Date: 20170922
  Receipt Date: 20170922
  Transmission Date: 20171128
  Serious: Yes (Other)
  Sender: FDA-Public Use
  Company Number: US-BAYER-2017-179843

PATIENT
  Age: 56 Year
  Sex: Female

DRUGS (1)
  1. CLIMARA PRO [Suspect]
     Active Substance: ESTRADIOL\LEVONORGESTREL
     Indication: HORMONE REPLACEMENT THERAPY
     Dosage: UNK
     Route: 062
     Dates: end: 2017

REACTIONS (3)
  - Incorrect dose administered by device [None]
  - Postmenopausal haemorrhage [None]
  - Product physical issue [None]

NARRATIVE: CASE EVENT DATE: 2017
